FAERS Safety Report 7399640-X (Version None)
Quarter: 2011Q2

REPORT INFORMATION
  Report Type: 
  Country: None (occurrence: None)
  Receive Date: 20110407
  Receipt Date: 20110326
  Transmission Date: 20111010
  Serious: Yes (Hospitalization)
  Sender: FDA-Public Use
  Company Number: IE-SANOFI-AVENTIS-2010SA074095

PATIENT
  Age: 70 Year
  Sex: Female
  Weight: 91 kg

DRUGS (12)
  1. WARFARIN SODIUM [Concomitant]
     Indication: SURGERY
     Dosage: AS PER INR
     Dates: start: 20101118
  2. WARFARIN SODIUM [Concomitant]
     Dosage: AS PER INR
     Dates: start: 20101118
  3. CLOPIDOGREL [Concomitant]
     Route: 048
     Dates: start: 20101113, end: 20110219
  4. PANTOPRAZOLE [Concomitant]
     Dates: start: 20101113
  5. CARDICOR [Concomitant]
     Dates: start: 20101118
  6. ALL OTHER THERAPEUTIC PRODUCTS [Concomitant]
     Indication: ATRIAL FIBRILLATION
  7. ALL OTHER THERAPEUTIC PRODUCTS [Concomitant]
     Indication: SURGERY
  8. ROSUVASTATIN [Concomitant]
  9. FLOXACILLIN SODIUM [Suspect]
     Indication: PROPHYLAXIS
     Route: 048
     Dates: start: 20101117, end: 20101121
  10. ASPIRIN [Concomitant]
     Indication: ANTIPLATELET THERAPY
     Dates: start: 20101113
  11. MULTAQ [Suspect]
     Route: 048
     Dates: start: 20101117, end: 20101120
  12. FLOXACILLIN SODIUM [Suspect]
     Indication: CARDIAC PACEMAKER INSERTION
     Route: 048
     Dates: start: 20101117, end: 20101121

REACTIONS (11)
  - RENAL FAILURE [None]
  - HEPATORENAL SYNDROME [None]
  - VOMITING [None]
  - PYREXIA [None]
  - TACHYCARDIA [None]
  - OLIGURIA [None]
  - NAUSEA [None]
  - LETHARGY [None]
  - BLOOD CREATININE INCREASED [None]
  - ACUTE HEPATIC FAILURE [None]
  - DIARRHOEA [None]
